FAERS Safety Report 11904151 (Version 1)
Quarter: 2016Q1

REPORT INFORMATION
  Report Type: Spontaneous
  Country: US (occurrence: US)
  Receive Date: 20160108
  Receipt Date: 20160108
  Transmission Date: 20160526
  Serious: No
  Sender: FDA-Public Use
  Company Number: US-ROCHE-1551366

PATIENT
  Sex: Female

DRUGS (6)
  1. IVIG [Concomitant]
     Active Substance: HUMAN IMMUNOGLOBULIN G
  2. SERTRALINE [Concomitant]
     Active Substance: SERTRALINE HYDROCHLORIDE
     Indication: DEPRESSION
  3. ZOFRAN [Concomitant]
     Active Substance: ONDANSETRON HYDROCHLORIDE
     Indication: NAUSEA
  4. SYNTHROID [Concomitant]
     Active Substance: LEVOTHYROXINE SODIUM
     Indication: HYPOTHYROIDISM
  5. METFORMIN [Concomitant]
     Active Substance: METFORMIN HYDROCHLORIDE
     Indication: GLUCOSE TOLERANCE IMPAIRED
  6. RITUXAN [Suspect]
     Active Substance: RITUXIMAB
     Indication: NEUROPATHY PERIPHERAL
     Dosage: IV ONCE A WK FOR 4 WEEKS
     Route: 042
     Dates: start: 20140110, end: 20140919

REACTIONS (12)
  - Nausea [Recovered/Resolved]
  - Diarrhoea [Recovered/Resolved]
  - Gait disturbance [Recovering/Resolving]
  - Hypoaesthesia [Unknown]
  - Neuropathy peripheral [Recovering/Resolving]
  - Fatigue [Unknown]
  - Muscular weakness [Recovering/Resolving]
  - Refusal of treatment by patient [Unknown]
  - Drug ineffective [Unknown]
  - Asthenia [Recovering/Resolving]
  - Abdominal discomfort [Recovered/Resolved]
  - Paraesthesia [Unknown]
